FAERS Safety Report 9836561 (Version 1)
Quarter: 2014Q1

REPORT INFORMATION
  Report Type: Spontaneous
  Country: FR (occurrence: FR)
  Receive Date: 20140123
  Receipt Date: 20140123
  Transmission Date: 20141002
  Serious: Yes (Hospitalization)
  Sender: FDA-Public Use
  Company Number: FR-009507513-1401FRA004791

PATIENT
  Age: 71 Year
  Sex: Female

DRUGS (8)
  1. NORSET [Suspect]
     Indication: DEPRESSION
     Dosage: UNK
     Route: 048
     Dates: start: 20131016, end: 20131025
  2. EBIXA [Suspect]
     Indication: DEMENTIA ALZHEIMER^S TYPE
     Dosage: 10 MG, QD
     Route: 048
     Dates: start: 20130807, end: 20131025
  3. AMLOR [Concomitant]
     Dosage: UNK
     Route: 048
  4. LEVOTHYROX [Concomitant]
     Dosage: UNK
     Route: 048
  5. SERESTA [Concomitant]
     Dosage: 10 MG, QD
     Route: 048
  6. FOLIC ACID [Concomitant]
     Dosage: 5 MG, BID
     Route: 048
  7. DIFFU K [Concomitant]
     Dosage: 1 DF, QD
     Route: 048
  8. FORLAX [Concomitant]
     Dosage: UNK
     Route: 048
     Dates: end: 20131028

REACTIONS (2)
  - Hepatocellular injury [Recovered/Resolved]
  - Jaundice cholestatic [Recovered/Resolved]
